FAERS Safety Report 23685598 (Version 4)
Quarter: 2024Q3

REPORT INFORMATION
  Report Type: Spontaneous
  Country: US (occurrence: US)
  Receive Date: 20240329
  Receipt Date: 20240907
  Transmission Date: 20241016
  Serious: Yes (Other)
  Sender: JOHNSON AND JOHNSON
  Company Number: US-JNJFOC-20240357490

PATIENT
  Sex: Female

DRUGS (38)
  1. TALQUETAMAB [Suspect]
     Active Substance: TALQUETAMAB
     Indication: Plasma cell myeloma
     Dosage: STEP UP DOSE 1
     Route: 058
     Dates: start: 20240319, end: 20240319
  2. TALQUETAMAB [Suspect]
     Active Substance: TALQUETAMAB
     Dosage: STEP UP DOSE 2
     Route: 058
     Dates: start: 20240321, end: 20240321
  3. TALQUETAMAB [Suspect]
     Active Substance: TALQUETAMAB
     Route: 058
     Dates: start: 20240325, end: 20240325
  4. TALQUETAMAB [Suspect]
     Active Substance: TALQUETAMAB
     Route: 058
     Dates: start: 20240327, end: 20240327
  5. ACYCLOVIR [Concomitant]
     Active Substance: ACYCLOVIR
     Indication: Prophylaxis
     Route: 048
     Dates: start: 20240319, end: 20240328
  6. ALBUTEROL [Concomitant]
     Active Substance: ALBUTEROL
     Indication: Wheezing
     Route: 048
     Dates: start: 20240319, end: 20240328
  7. ALBUTEROL [Concomitant]
     Active Substance: ALBUTEROL
     Indication: Dyspnoea
  8. ATROPINE [Concomitant]
     Active Substance: ATROPINE
     Dosage: PRN COMMENT: STAT XL PRN IF HR IS { 40 AND THE PATIENT  IS SYMPTOMATIC OR HR IS ^(40 AND SBP IS 90
     Route: 042
     Dates: start: 20240320, end: 20240328
  9. NITROGLYCERIN [Concomitant]
     Active Substance: NITROGLYCERIN
     Indication: Chest pain
     Dosage: Q5 MIN X3 FOR CHEST PAIN MAXIMUM OF 3 DOSES. HOLD IF SBP 90 MMM HGN  DO NOT CHEW, CRUSH, OR SWALLOW
     Route: 060
     Dates: start: 20240320, end: 20240328
  10. BENZONATATE [Concomitant]
     Active Substance: BENZONATATE
     Indication: Cough
     Dosage: SWALLOW CAPSULE WHOLE. DO NOT BREAK, CHEW, DISSOLVE,  CUT, OR CRUSH.
     Route: 048
     Dates: start: 20240323, end: 20240328
  11. CHLORHEXIDINE [Concomitant]
     Active Substance: CHLORHEXIDINE
     Indication: Product used for unknown indication
     Dosage: EVERY 12 HOURS SCHEDULED?SWISH + SPIT
     Route: 065
     Dates: start: 20240325, end: 20240328
  12. BENADRYL [Concomitant]
     Active Substance: DIPHENHYDRAMINE HYDROCHLORIDE
     Indication: Pruritus
     Route: 048
     Dates: start: 20240324, end: 20240328
  13. BENADRYL [Concomitant]
     Active Substance: DIPHENHYDRAMINE HYDROCHLORIDE
     Route: 048
     Dates: start: 20240327, end: 20240327
  14. BENADRYL [Concomitant]
     Active Substance: DIPHENHYDRAMINE HYDROCHLORIDE
     Route: 048
     Dates: start: 20240325, end: 20240325
  15. BENADRYL [Concomitant]
     Active Substance: DIPHENHYDRAMINE HYDROCHLORIDE
     Route: 048
     Dates: start: 20240321, end: 20240321
  16. BENADRYL [Concomitant]
     Active Substance: DIPHENHYDRAMINE HYDROCHLORIDE
     Route: 048
     Dates: start: 20240319, end: 20240319
  17. BENADRYL [Concomitant]
     Active Substance: DIPHENHYDRAMINE HYDROCHLORIDE
     Route: 042
     Dates: start: 20240326, end: 20240326
  18. ENOXAPARIN [Concomitant]
     Active Substance: ENOXAPARIN
     Indication: Product used for unknown indication
     Dosage: FOR CRCL } 30
     Route: 058
     Dates: start: 20240319, end: 20240328
  19. FAMOTIDINE [Concomitant]
     Active Substance: FAMOTIDINE
     Indication: Product used for unknown indication
     Dosage: PHARMACY TO AUTO CONVERT IV TO PO PER PROTOCOL. IV USE:  ASEPTICALLY DILUTE WITH NS TO A TOTAL VOLUM
     Route: 042
     Dates: start: 20240326, end: 20240326
  20. FLUTICASONE PROPIONATE [Concomitant]
     Active Substance: FLUTICASONE PROPIONATE
     Indication: Product used for unknown indication
     Dosage: 2 SPRAY
     Route: 055
     Dates: start: 20240321, end: 20240328
  21. LACTATED RINGERS SOLUTION [Concomitant]
     Active Substance: CALCIUM CHLORIDE\POTASSIUM CHLORIDE\SODIUM CHLORIDE\SODIUM LACTATE
     Indication: Product used for unknown indication
     Route: 042
     Dates: start: 20240320, end: 20240320
  22. LEVETIRACETAM [Concomitant]
     Active Substance: LEVETIRACETAM
     Indication: Product used for unknown indication
     Dosage: MAY SPLIT IN HALF IF TABLET IS SCORED. DO NOT CRUSH OR CHEW.
     Route: 048
     Dates: start: 20240320, end: 20240328
  23. DIPHENHYDRAMINE HYDROCHLORIDE\LIDOCAINE HYDROCHLORIDE\NYSTATIN [Concomitant]
     Active Substance: DIPHENHYDRAMINE HYDROCHLORIDE\LIDOCAINE HYDROCHLORIDE\NYSTATIN
     Indication: Mucositis management
     Route: 048
     Dates: start: 20240325, end: 20240328
  24. MAGNESIUM SULFATE [Concomitant]
     Active Substance: MAGNESIUM SULFATE\MAGNESIUM SULFATE HEPTAHYDRATE
     Indication: Product used for unknown indication
     Route: 042
     Dates: start: 20240320, end: 20240320
  25. MAGNESIUM SULFATE [Concomitant]
     Active Substance: MAGNESIUM SULFATE\MAGNESIUM SULFATE HEPTAHYDRATE
     Route: 042
     Dates: start: 20240320, end: 20240320
  26. MELATONIN [Concomitant]
     Active Substance: MELATONIN
     Indication: Insomnia
     Route: 048
     Dates: start: 20240319, end: 20240328
  27. SOLU-MEDROL [Concomitant]
     Active Substance: METHYLPREDNISOLONE SODIUM SUCCINATE
     Indication: Product used for unknown indication
     Route: 042
     Dates: start: 20240327, end: 20240328
  28. SOLU-MEDROL [Concomitant]
     Active Substance: METHYLPREDNISOLONE SODIUM SUCCINATE
     Route: 042
     Dates: start: 20240326, end: 20240327
  29. SODIUM CHLORIDE [Concomitant]
     Active Substance: SODIUM CHLORIDE
     Indication: Product used for unknown indication
     Dosage: FLUSH FOR SECONDARY INFUSION PROTOCOL ?INFUSE 20 ML NS AT MINI-BAG INFUSION RATE - PER FLUSH FOR  SE
     Route: 042
     Dates: start: 20240319, end: 20240328
  30. NYSTATIN [Concomitant]
     Active Substance: NYSTATIN
     Indication: Oral candidiasis
     Dosage: 100,000 UNITS/ML
     Route: 048
     Dates: start: 20240324, end: 20240328
  31. ONDANSETRON [Concomitant]
     Active Substance: ONDANSETRON
     Indication: Nausea
     Route: 048
     Dates: start: 20240319, end: 20240322
  32. ONDANSETRON [Concomitant]
     Active Substance: ONDANSETRON
     Route: 042
     Dates: start: 20240319, end: 20240328
  33. ROXICODONE [Concomitant]
     Active Substance: OXYCODONE HYDROCHLORIDE
     Indication: Pain
     Route: 048
     Dates: start: 20240326, end: 20240328
  34. PANTOPRAZOLE [Concomitant]
     Active Substance: PANTOPRAZOLE
     Indication: Gastrooesophageal reflux disease
     Dosage: 30 MINUTES BEFORE BREAKFAST MEAL ROUTE: ORAL
     Route: 048
     Dates: start: 20240319, end: 20240328
  35. POLYETHYLENE GLYCOLS [Concomitant]
     Active Substance: POLYETHYLENE GLYCOLS
     Indication: Constipation
     Dosage: MIX WITH 4-8 OUNCES WATER.
     Route: 048
     Dates: start: 20240319, end: 20240328
  36. PROCHLORPERAZINE [Concomitant]
     Active Substance: PROCHLORPERAZINE
     Indication: Nausea
     Route: 048
     Dates: start: 20240319, end: 20240328
  37. PROCHLORPERAZINE [Concomitant]
     Active Substance: PROCHLORPERAZINE
     Indication: Vomiting
  38. SULFAMETHOXAZOLE\TRIMETHOPRIM [Concomitant]
     Active Substance: SULFAMETHOXAZOLE\TRIMETHOPRIM
     Indication: Prophylaxis
     Dosage: 800-160 MG
     Route: 048
     Dates: start: 20240320, end: 20240328

REACTIONS (2)
  - Cytokine release syndrome [Recovered/Resolved]
  - Dysgraphia [Recovered/Resolved]

NARRATIVE: CASE EVENT DATE: 20240320
